FAERS Safety Report 12432251 (Version 2)
Quarter: 2017Q2

REPORT INFORMATION
  Report Type: Report from Study
  Country: UA (occurrence: UA)
  Receive Date: 20160603
  Receipt Date: 20170424
  Transmission Date: 20170830
  Serious: Yes (Death, Life-Threatening)
  Sender: FDA-Public Use
  Company Number: UA-TEVA-619942ISR

PATIENT
  Age: 58 Year
  Sex: Female
  Weight: 78 kg

DRUGS (10)
  1. CISPLATIN. [Suspect]
     Active Substance: CISPLATIN
     Indication: NON-SMALL CELL LUNG CANCER
     Dosage: ON DAY 1 OF EACH CYCLE
     Route: 015
     Dates: start: 20151104, end: 20151127
  2. PACLITAXEL. [Suspect]
     Active Substance: PACLITAXEL
     Indication: NON-SMALL CELL LUNG CANCER
     Dosage: ON DAY 0 OF EACH CYCLE
     Route: 042
     Dates: start: 20151103, end: 20151126
  3. THEOPHYLLINE [Concomitant]
     Active Substance: THEOPHYLLINE ANHYDROUS
     Indication: DYSPNOEA
     Dosage: 600 MILLIGRAM DAILY;
     Route: 048
     Dates: start: 20151112
  4. AMBROXOL [Concomitant]
     Active Substance: AMBROXOL
     Indication: COUGH
     Dosage: 60 MILLIGRAM DAILY;
     Route: 048
     Dates: start: 20151112
  5. COCARBOXYLASE [Concomitant]
     Active Substance: COCARBOXYLASE
     Indication: FATIGUE
     Dosage: 100 DOSAGE FORMS DAILY;
     Route: 042
     Dates: start: 20151125, end: 20151130
  6. ASCORBIC ACID. [Concomitant]
     Active Substance: ASCORBIC ACID
     Indication: DYSPNOEA
     Dosage: 200 DOSAGE FORMS DAILY;
     Route: 042
     Dates: start: 20151125, end: 20151130
  7. INOSINE [Concomitant]
     Active Substance: INOSINE
     Indication: FATIGUE
     Dosage: 100 MILLIGRAM DAILY;
     Route: 042
     Dates: start: 20151125, end: 20151130
  8. THEOPHYLLINE [Concomitant]
     Active Substance: THEOPHYLLINE ANHYDROUS
     Dosage: 200 MILLIGRAM DAILY;
     Route: 042
     Dates: start: 20151125, end: 20151130
  9. LONQUEX [Suspect]
     Active Substance: LIPEGFILGRASTIM
     Indication: NEUTROPENIA
     Dosage: DB: LONQUEX 6 MG OR NEULASTA 6 MG OR PLACEBO. LAST PRIOR DOSE BEFORE SAE: 27-NOV-2015
     Route: 058
     Dates: start: 20151105, end: 20151127
  10. NEULASTA [Suspect]
     Active Substance: PEGFILGRASTIM
     Indication: NEUTROPENIA
     Dosage: DB: LONQUEX 6 MG OR NEULASTA 6 MG OR PLACEBOLAST PRIOR DOSE BEFORE SAE: 27-NOV-2015
     Dates: start: 20151105, end: 20151127

REACTIONS (2)
  - Cardiac failure acute [Not Recovered/Not Resolved]
  - Pulmonary embolism [Fatal]

NARRATIVE: CASE EVENT DATE: 20151214
